FAERS Safety Report 6358457-5 (Version None)
Quarter: 2009Q3

REPORT INFORMATION
  Report Type: 
  Country: None (occurrence: None)
  Receive Date: 20090916
  Receipt Date: 20081107
  Transmission Date: 20100115
  Serious: No
  Sender: FDA-Public Use
  Company Number: US-AMGEN-KDL317906

PATIENT
  Sex: Male

DRUGS (6)
  1. NEUPOGEN [Suspect]
     Indication: NEUTROPENIA
     Dates: start: 20080903
  2. PEG-INTRON [Concomitant]
  3. PROCRIT [Concomitant]
  4. RIBAVIRIN [Concomitant]
  5. TACROLIMUS [Concomitant]
  6. MICARDIS [Concomitant]

REACTIONS (1)
  - PAIN IN EXTREMITY [None]
